FAERS Safety Report 7904370-9 (Version None)
Quarter: 2011Q4

REPORT INFORMATION
  Report Type: 
  Country: None (occurrence: None)
  Receive Date: 20111109
  Receipt Date: 20111031
  Transmission Date: 20120403
  Serious: Yes (Hospitalization)
  Sender: FDA-Public Use
  Company Number: US-BAYER-201036122NA

PATIENT
  Age: 27 Year
  Sex: Female
  Weight: 145 kg

DRUGS (1)
  1. YASMIN [Suspect]
     Indication: CONTRACEPTION
     Dosage: UNK
     Route: 048
     Dates: start: 20080701, end: 20090801

REACTIONS (15)
  - CHOLECYSTITIS CHRONIC [None]
  - ECONOMIC PROBLEM [None]
  - BILIARY DYSKINESIA [None]
  - CONSTIPATION [None]
  - DEPRESSION [None]
  - DYSPEPSIA [None]
  - CHOLELITHIASIS [None]
  - ADHESION [None]
  - DIARRHOEA [None]
  - CHOLECYSTECTOMY [None]
  - ABDOMINAL DISTENSION [None]
  - ANXIETY [None]
  - SCAR [None]
  - FLATULENCE [None]
  - GALLBLADDER CHOLESTEROLOSIS [None]
